FAERS Safety Report 7483366-8 (Version None)
Quarter: 2011Q2

REPORT INFORMATION
  Report Type: 
  Country: None (occurrence: None)
  Receive Date: 20110517
  Receipt Date: 20110415
  Transmission Date: 20111010
  Serious: Yes (Other)
  Sender: FDA-Public Use
  Company Number: US-BAYER-201024391NA

PATIENT
  Age: 31 Year
  Sex: Female
  Weight: 65.76 kg

DRUGS (7)
  1. ADIPEX [Concomitant]
  2. DROSPIRENONE AND ETHINYL ESTRADIOL [Suspect]
     Indication: ORAL CONTRACEPTION
     Dosage: UNK UNK, QD
     Route: 048
  3. ZOLOFT [Concomitant]
     Dosage: 100 MG, UNK
     Route: 048
  4. PHENTERMINE [Concomitant]
  5. YASMIN [Suspect]
     Indication: ORAL CONTRACEPTION
     Dosage: UNK UNK, QD
     Route: 048
  6. MEPERGAN FORTIS [Concomitant]
  7. IBUPROFEN [Concomitant]
     Dosage: UNK
     Dates: start: 20000101

REACTIONS (3)
  - CHOLECYSTITIS CHRONIC [None]
  - ABDOMINAL DISTENSION [None]
  - ABDOMINAL PAIN [None]
